FAERS Safety Report 21110674 (Version 1)
Quarter: 2022Q3

REPORT INFORMATION
  Report Type: Spontaneous
  Country: CA (occurrence: CA)
  Receive Date: 20220721
  Receipt Date: 20220721
  Transmission Date: 20221026
  Serious: Yes (Death, Life-Threatening, Hospitalization)
  Sender: FDA-Public Use
  Company Number: CA-STRIDES ARCOLAB LIMITED-2022SP009152

PATIENT
  Age: 63 Year
  Sex: Male

DRUGS (9)
  1. MYCOPHENOLATE MOFETIL [Suspect]
     Active Substance: MYCOPHENOLATE MOFETIL
     Indication: Lung transplant
     Dosage: UNK
     Route: 065
  2. MYCOPHENOLATE MOFETIL [Suspect]
     Active Substance: MYCOPHENOLATE MOFETIL
     Dosage: UNK, DOSES REDUCED
     Route: 065
  3. TACROLIMUS [Suspect]
     Active Substance: TACROLIMUS
     Indication: Lung transplant
     Dosage: UNK
     Route: 065
  4. TACROLIMUS [Suspect]
     Active Substance: TACROLIMUS
     Dosage: UNK DOSES REDUCED
     Route: 065
  5. METHYLPREDNISOLONE [Suspect]
     Active Substance: METHYLPREDNISOLONE
     Indication: Lung transplant
     Dosage: UNK
     Route: 065
  6. METHYLPREDNISOLONE [Suspect]
     Active Substance: METHYLPREDNISOLONE
     Dosage: 10 MILLIGRAM/KILOGRAM STEROID BOLUS FOR PRESUMED REJECTION (10 MG/KG OF METHYLPREDNISONE FOR 3 D)
     Route: 050
  7. BASILIXIMAB [Suspect]
     Active Substance: BASILIXIMAB
     Indication: Lung transplant
     Dosage: UNK
     Route: 065
  8. VALGANCICLOVIR [Concomitant]
     Active Substance: VALGANCICLOVIR
     Indication: Prophylaxis
     Dosage: UNK
     Route: 065
  9. SULFAMETHOXAZOLE\TRIMETHOPRIM [Concomitant]
     Active Substance: SULFAMETHOXAZOLE\TRIMETHOPRIM
     Indication: Prophylaxis
     Dosage: UNK
     Route: 065

REACTIONS (14)
  - Brain death [Fatal]
  - Depressed level of consciousness [Fatal]
  - Subdural haemorrhage [Fatal]
  - Haemorrhage intracranial [Fatal]
  - Subarachnoid haemorrhage [Fatal]
  - Brain herniation [Fatal]
  - Lung disorder [Fatal]
  - Atrial fibrillation [Fatal]
  - Deep vein thrombosis [Fatal]
  - Escherichia bacteraemia [Fatal]
  - Septic shock [Fatal]
  - Strongyloidiasis [Unknown]
  - Haemophilus infection [Unknown]
  - Off label use [Unknown]
